FAERS Safety Report 5642286-1 (Version None)
Quarter: 2008Q1

REPORT INFORMATION
  Report Type: 
  Country: None (occurrence: None)
  Receive Date: 20080226
  Receipt Date: 20080211
  Transmission Date: 20080703
  Serious: Yes (Other)
  Sender: FDA-Public Use
  Company Number: S08-UKI-00666-01

PATIENT
  Age: 26 Year
  Sex: Female
  Weight: 75 kg

DRUGS (4)
  1. ESCITALOPRAM [Suspect]
     Indication: DEPRESSION
     Dosage: 20 MG QD PO
     Route: 048
     Dates: start: 20070301, end: 20080128
  2. CHLORPROMAZINE [Concomitant]
  3. DICLOFENAC SODIUM [Concomitant]
  4. TRAMADOL HCL [Concomitant]

REACTIONS (3)
  - ENURESIS [None]
  - NEUROPATHY PERIPHERAL [None]
  - PARAESTHESIA [None]
